FAERS Safety Report 24893067 (Version 7)
Quarter: 2025Q4

REPORT INFORMATION
  Report Type: Report from Study
  Country: US (occurrence: US)
  Receive Date: 20250128
  Receipt Date: 20251001
  Transmission Date: 20260118
  Serious: Yes (Other)
  Sender: SUNOVION
  Company Number: US-SUMITOMO PHARMA SWITZERLAND GMBH-2025SPA000550

PATIENT
  Age: 68 Year
  Sex: Male

DRUGS (2)
  1. ORGOVYX [Suspect]
     Active Substance: RELUGOLIX
     Indication: Prostate cancer
     Dosage: 360 MG
     Route: 048
     Dates: start: 20241231, end: 20241231
  2. ORGOVYX [Suspect]
     Active Substance: RELUGOLIX
     Dosage: 120 MG, QD
     Route: 048
     Dates: start: 20250101

REACTIONS (21)
  - Pulmonary congestion [Unknown]
  - Pain [Unknown]
  - Muscle fatigue [Unknown]
  - Fluid retention [Unknown]
  - Increased appetite [Unknown]
  - Nervousness [Unknown]
  - Pyrexia [Unknown]
  - Feeling abnormal [Unknown]
  - Chills [Unknown]
  - Nervousness [Unknown]
  - Chest discomfort [Unknown]
  - Vitamin D decreased [Unknown]
  - Serum ferritin decreased [Unknown]
  - Radiation inflammation [Recovering/Resolving]
  - Visual impairment [Unknown]
  - Osteoporosis [Unknown]
  - Feeling hot [Unknown]
  - Weight increased [Unknown]
  - Fatigue [Unknown]
  - Hot flush [Unknown]
  - Hyperhidrosis [Unknown]
